FAERS Safety Report 23849302 (Version 1)
Quarter: 2024Q2

REPORT INFORMATION
  Report Type: Spontaneous
  Country: US (occurrence: US)
  Receive Date: 20240513
  Receipt Date: 20240513
  Transmission Date: 20240716
  Serious: No
  Sender: FDA-Public Use
  Company Number: US-ABBVIE-5757394

PATIENT

DRUGS (1)
  1. KYBELLA [Suspect]
     Active Substance: DEOXYCHOLIC ACID
     Indication: Gastrointestinal disorder
     Dosage: TIME INTERVAL: AS NECESSARY
     Route: 058

REACTIONS (2)
  - Off label use [Unknown]
  - Injection site discolouration [Unknown]
